FAERS Safety Report 7331737-2 (Version None)
Quarter: 2011Q1

REPORT INFORMATION
  Report Type: 
  Country: None (occurrence: None)
  Receive Date: 20110304
  Receipt Date: 20110304
  Transmission Date: 20110831
  Serious: Yes (Death, Hospitalization)
  Sender: FDA-Public Use
  Company Number: PHHO2008ES00925

PATIENT
  Sex: Female
  Weight: 49 kg

DRUGS (2)
  1. PLACEBO [Suspect]
     Indication: CARCINOID TUMOUR
     Dosage: PLACEBO
     Route: 048
     Dates: start: 20070717, end: 20071204
  2. SANDOSTATIN LAR [Suspect]
     Indication: CARCINOID TUMOUR
     Dosage: DOUBLE BLIND
     Dates: start: 20070717, end: 20071204

REACTIONS (3)
  - DRUG INEFFECTIVE [None]
  - NEOPLASM MALIGNANT [None]
  - HEPATIC FAILURE [None]
